FAERS Safety Report 15028015 (Version 2)
Quarter: 2018Q2

REPORT INFORMATION
  Report Type: Report from Study
  Country: US (occurrence: US)
  Receive Date: 20180619
  Receipt Date: 20180621
  Transmission Date: 20180711
  Serious: Yes (Other)
  Sender: FDA-Public Use
  Company Number: US-ROCHE-2140026

PATIENT
  Age: 59 Year
  Sex: Male
  Weight: 70.8 kg

DRUGS (18)
  1. RITUXIMAB. [Suspect]
     Active Substance: RITUXIMAB
     Indication: B-CELL LYMPHOMA
     Dosage: DOSE OF LAST RITUXIMAB ADMINISTERED 700, DATE OF MOST RECENT DOSE OF RITUXIMAB PRIOR?TO AE ONSET: 01
     Route: 042
     Dates: start: 20160205
  2. VINCRISTINE [Suspect]
     Active Substance: VINCRISTINE
     Indication: B-CELL LYMPHOMA
     Dosage: DOSE OF LAST VINCRISTINE ADMINISTERED: 2, DATE OF MOST RECENT DOSE OF VINCRISTINE PRIOR TO AE ONSET:
     Route: 042
     Dates: start: 20160205
  3. PREDNISONE. [Suspect]
     Active Substance: PREDNISONE
     Indication: B-CELL LYMPHOMA
     Dosage: DOSE OF LAST PREDNISONE ADMINISTERED: 100MG, DATE OF MOST RECENT DOSE OF PREDNISONE PRIOR TO AE ONSE
     Route: 048
     Dates: start: 20160205
  4. CYCLOSPORINE. [Concomitant]
     Active Substance: CYCLOSPORINE
     Indication: DRY EYE
     Route: 047
     Dates: start: 20160126
  5. SITAGLIPTIN [Concomitant]
     Active Substance: SITAGLIPTIN
     Indication: DIABETES MELLITUS
  6. VITAMIN C [Concomitant]
     Active Substance: ASCORBIC ACID
     Route: 065
     Dates: start: 20160126
  7. VITAMIN D3 [Concomitant]
     Active Substance: CHOLECALCIFEROL
     Indication: HYPOCALCAEMIA
     Route: 065
     Dates: start: 20160126
  8. DORZOLAMIDE HYDROCHLORIDE AND TIMOLOL MALEATE [Concomitant]
     Active Substance: DORZOLAMIDE HYDROCHLORIDE\TIMOLOL MALEATE
     Indication: GLAUCOMA
     Route: 047
     Dates: start: 20160126
  9. DOXORUBICIN [Suspect]
     Active Substance: DOXORUBICIN
     Indication: B-CELL LYMPHOMA
     Dosage: DOSE OF LAST DOXORUBICIN ADMINISTERED: 90, DATE OF MOST RECENT DOSE OF DOXORUBICIN PRIOR TO AE ONSET
     Route: 042
     Dates: start: 20160205
  10. ALPHAGAN P [Concomitant]
     Active Substance: BRIMONIDINE TARTRATE
     Indication: INTRAOCULAR PRESSURE DECREASED
     Route: 065
     Dates: start: 20160126
  11. RANITIDINE. [Concomitant]
     Active Substance: RANITIDINE
     Indication: COUGH
     Route: 065
     Dates: start: 20160918
  12. VENETOCLAX. [Suspect]
     Active Substance: VENETOCLAX
     Indication: B-CELL LYMPHOMA
     Dosage: 200 TO 800 MILLIGRAMS (MG) TABLETS WILL BE ADMINISTERED ORALLY ONCE DAILY (QD) AS PER PROTOCOL.?DOSE
     Route: 048
     Dates: start: 20160208, end: 20180511
  13. CYCLOPHOSPHAMIDE. [Suspect]
     Active Substance: CYCLOPHOSPHAMIDE
     Indication: B-CELL LYMPHOMA
     Dosage: DOSE OF LAST CYCLOPHOSPHAMIDE ADMINISTERED: 1400, DATE OF MOST RECENT DOSE OF?CYCLOPHOSPHAMIDE PRIOR
     Route: 042
     Dates: start: 20160205
  14. GLIMEPIRIDE. [Concomitant]
     Active Substance: GLIMEPIRIDE
     Indication: DIABETES MELLITUS
     Route: 065
     Dates: start: 20160126
  15. SYSTANE ULTRA [Concomitant]
     Active Substance: POLYETHYLENE GLYCOL 400\PROPYLENE GLYCOL
     Route: 065
     Dates: start: 20160126
  16. LATANOPROST. [Concomitant]
     Active Substance: LATANOPROST
     Indication: GLAUCOMA
     Route: 047
     Dates: start: 20160126
  17. UBIQUINONE [Concomitant]
     Active Substance: UBIDECARENONE
     Route: 065
     Dates: start: 20160126
  18. CALCIUM CARBONATE. [Concomitant]
     Active Substance: CALCIUM CARBONATE
     Route: 065
     Dates: start: 20161118

REACTIONS (1)
  - Glioblastoma [Not Recovered/Not Resolved]

NARRATIVE: CASE EVENT DATE: 20180511
